FAERS Safety Report 7402448-X (Version None)
Quarter: 2011Q2

REPORT INFORMATION
  Report Type: 
  Country: None (occurrence: None)
  Receive Date: 20110401
  Receipt Date: 20110325
  Transmission Date: 20111010
  Serious: Yes (Disabling, Other)
  Sender: FDA-Public Use
  Company Number: WAES1103USA03396

PATIENT
  Age: 49 Year
  Sex: Male
  Weight: 239.4992 kg

DRUGS (3)
  1. ASPIRIN [Concomitant]
  2. LIPITOR [Suspect]
     Indication: BLOOD CHOLESTEROL INCREASED
     Dosage: 40 MG/DAILY/PO
     Route: 048
     Dates: start: 20070101, end: 20090101
  3. ZOCOR [Suspect]
     Indication: BLOOD CHOLESTEROL INCREASED
     Dosage: 40 MG/DAILY/PO
     Route: 048
     Dates: start: 20070101, end: 20070101

REACTIONS (8)
  - MALAISE [None]
  - ABASIA [None]
  - URTICARIA [None]
  - MUSCLE SPASMS [None]
  - ARTHRALGIA [None]
  - JOINT LOCK [None]
  - GASTROINTESTINAL DISORDER [None]
  - RASH [None]
